FAERS Safety Report 20041910 (Version 6)
Quarter: 2021Q4

REPORT INFORMATION
  Report Type: Spontaneous
  Country: US (occurrence: US)
  Receive Date: 20211108
  Receipt Date: 20211230
  Transmission Date: 20220303
  Serious: Yes (Other)
  Sender: FDA-Public Use
  Company Number: US-STRONGBRIDGE BIOPHARMA-2021-STR-000365

PATIENT
  Age: 60 Year
  Sex: Female

DRUGS (2)
  1. KEVEYIS [Suspect]
     Active Substance: DICHLORPHENAMIDE
     Indication: Familial periodic paralysis
     Dosage: 100 MG, QD
     Route: 048
     Dates: start: 20211026
  2. KEVEYIS [Suspect]
     Active Substance: DICHLORPHENAMIDE
     Dosage: 50 MG, QD
     Route: 048

REACTIONS (10)
  - Seizure [Unknown]
  - Decreased appetite [Unknown]
  - Adverse drug reaction [Recovering/Resolving]
  - Cognitive disorder [Unknown]
  - Dizziness [Unknown]
  - Disease recurrence [Recovering/Resolving]
  - Drug ineffective [Recovering/Resolving]
  - Condition aggravated [Not Recovered/Not Resolved]
  - Fall [Not Recovered/Not Resolved]
  - Product physical issue [Unknown]

NARRATIVE: CASE EVENT DATE: 20211214
